FAERS Safety Report 11831368 (Version 1)
Quarter: 2015Q4

REPORT INFORMATION
  Report Type: Report from Study
  Country: US (occurrence: US)
  Receive Date: 20151214
  Receipt Date: 20151214
  Transmission Date: 20160305
  Serious: No
  Sender: FDA-Public Use
  Company Number: US-AMGEN-KDL101293

PATIENT
  Age: 55 Year
  Sex: Female

DRUGS (2)
  1. ENBREL [Suspect]
     Active Substance: ETANERCEPT
     Indication: PSORIASIS
  2. ENBREL [Suspect]
     Active Substance: ETANERCEPT
     Indication: COLITIS ULCERATIVE
     Dosage: UNK UNK, QWK
     Route: 058
     Dates: start: 2004

REACTIONS (2)
  - Throat irritation [Unknown]
  - Pain [Unknown]

NARRATIVE: CASE EVENT DATE: 20041127
